FAERS Safety Report 7318423-X (Version None)
Quarter: 2011Q1

REPORT INFORMATION
  Report Type: 
  Country: None (occurrence: None)
  Receive Date: 20110228
  Receipt Date: 20110218
  Transmission Date: 20110831
  Serious: Yes (Other)
  Sender: FDA-Public Use
  Company Number: CH-ELI_LILLY_AND_COMPANY-CH201101005293

PATIENT
  Age: 74 Year
  Sex: Female

DRUGS (3)
  1. SINTROM [Concomitant]
     Indication: THROMBOSIS PROPHYLAXIS
  2. CALCIMAGON-D3 [Concomitant]
     Dosage: 500 MG, 2/D
  3. FORTEO [Suspect]
     Indication: OSTEOPOROSIS
     Dosage: 20 UG, DAILY (1/D)
     Route: 058
     Dates: start: 20100528

REACTIONS (1)
  - PATHOLOGICAL FRACTURE [None]
